FAERS Safety Report 4543048-9 (Version None)
Quarter: 2005Q1

REPORT INFORMATION
  Report Type: 
  Country: None (occurrence: None)
  Receive Date: 20050103
  Receipt Date: 20041126
  Transmission Date: 20050727
  Serious: Yes (Death, Other)
  Sender: FDA-Public Use
  Company Number: 200413627JP

PATIENT
  Age: 60 Year
  Sex: Male
  Weight: 43 kg

DRUGS (6)
  1. TAXOTERE [Suspect]
     Indication: GASTRIC CANCER
     Route: 041
     Dates: start: 20041117, end: 20041117
  2. DECADRON [Concomitant]
     Indication: PREMEDICATION
     Route: 041
     Dates: start: 20041117, end: 20041117
  3. KYTRIL [Concomitant]
     Indication: PREMEDICATION
     Route: 041
     Dates: start: 20041117, end: 20041117
  4. PHYSIOLOGICAL SALINE [Concomitant]
     Indication: PREMEDICATION
     Route: 041
     Dates: start: 20041117, end: 20041117
  5. DEXTROSE 5% [Concomitant]
     Route: 041
     Dates: start: 20041117, end: 20041117
  6. ANTINEOPLASTIC AND IMMUNOSUPPRESSIVE AGENTS [Concomitant]
     Indication: GASTRIC CANCER
     Route: 048
     Dates: start: 20040409, end: 20041022

REACTIONS (13)
  - ANURIA [None]
  - CARDIAC ARREST [None]
  - COLD SWEAT [None]
  - DEPRESSED LEVEL OF CONSCIOUSNESS [None]
  - DIALYSIS [None]
  - HEPATIC FUNCTION ABNORMAL [None]
  - HYPOTENSION [None]
  - MULTI-ORGAN FAILURE [None]
  - PULSE PRESSURE DECREASED [None]
  - PYREXIA [None]
  - RENAL FAILURE [None]
  - SHOCK [None]
  - THERAPY NON-RESPONDER [None]
